FAERS Safety Report 6133641-4 (Version None)
Quarter: 2009Q1

REPORT INFORMATION
  Report Type: 
  Country: None (occurrence: None)
  Receive Date: 20090326
  Receipt Date: 20090319
  Transmission Date: 20090719
  Serious: Yes (Hospitalization, Congenital Anomaly)
  Sender: FDA-Public Use
  Company Number: A0680222A

PATIENT
  Sex: Male

DRUGS (5)
  1. PAXIL [Suspect]
     Indication: PANIC ATTACK
     Dosage: 10MG PER DAY
     Dates: start: 19990101, end: 20040601
  2. PAROXETINE HYDROCHLORIDE [Suspect]
     Indication: ANXIETY
     Dosage: 20MG PER DAY
     Route: 048
     Dates: start: 20040701, end: 20070901
  3. ZITHROMAX [Concomitant]
     Dates: start: 20040501
  4. IBUPROFEN TABLETS [Concomitant]
     Dates: start: 20040501
  5. VITAMIN TAB [Concomitant]

REACTIONS (10)
  - CARDIAC FAILURE [None]
  - CARDIOMEGALY [None]
  - CONGENITAL AORTIC ATRESIA [None]
  - DRUG EXPOSURE DURING PREGNANCY [None]
  - GROWTH RETARDATION [None]
  - HEART TRANSPLANT [None]
  - HEART VALVE INCOMPETENCE [None]
  - HYPOPLASTIC LEFT HEART SYNDROME [None]
  - MITRAL VALVE ATRESIA [None]
  - TRICUSPID VALVE INCOMPETENCE [None]
